FAERS Safety Report 7998132-4 (Version None)
Quarter: 2011Q4

REPORT INFORMATION
  Report Type: 
  Country: None (occurrence: None)
  Receive Date: 20111221
  Receipt Date: 20110224
  Transmission Date: 20120403
  Serious: No
  Sender: FDA-Public Use
  Company Number: US-GLAXOSMITHKLINE-A0915285A

PATIENT
  Age: 64 Year
  Sex: Male

DRUGS (9)
  1. CALCIUM [Concomitant]
  2. NEXIUM [Concomitant]
  3. CENTRUM SILVER [Concomitant]
  4. GLUCOSAMINE CHONDROITIN [Concomitant]
  5. FUROSEMIDE [Concomitant]
  6. ASPIRIN [Concomitant]
  7. VYTORIN [Concomitant]
  8. LOVAZA [Suspect]
     Indication: BLOOD CHOLESTEROL DECREASED
     Dosage: 1G PER DAY
     Route: 048
     Dates: start: 20101001, end: 20110214
  9. LOTREL [Concomitant]

REACTIONS (2)
  - ANAL PRURITUS [None]
  - ANORECTAL DISCOMFORT [None]
